FAERS Safety Report 5465561-2 (Version None)
Quarter: 2007Q3

REPORT INFORMATION
  Report Type: 
  Country: None (occurrence: None)
  Receive Date: 20070924
  Receipt Date: 19960528
  Transmission Date: 20080115
  Serious: Yes (Disabling)
  Sender: FDA-Public Use
  Company Number: FR-PFIZER INC-2006120847

PATIENT
  Sex: Male

DRUGS (2)
  1. IRINOTECAN HCL [Suspect]
     Indication: COLON CANCER
     Dosage: DAILY DOSE:690MG
     Route: 042
     Dates: start: 19960124, end: 19960124
  2. IRINOTECAN HCL [Suspect]
     Dosage: DAILY DOSE:500MG
     Route: 042
     Dates: start: 19960222, end: 19960412

REACTIONS (1)
  - NEUROPATHY [None]
